FAERS Safety Report 9089368 (Version 1)
Quarter: 2013Q1

REPORT INFORMATION
  Report Type: Spontaneous
  Country: US (occurrence: US)
  Receive Date: 20130201
  Receipt Date: 20130201
  Transmission Date: 20140127
  Serious: Yes (Other)
  Sender: FDA-Public Use
  Company Number: US-COVIDIEN/TYCO HEALTHCARE/MALLINCKRODT-T201300328

PATIENT
  Sex: Male

DRUGS (2)
  1. GABLOFEN [Suspect]
     Indication: MUSCLE SPASTICITY
     Dosage: 634 MCG/DAY
     Dates: end: 2012
  2. GABLOFEN [Suspect]
     Dosage: 640 MCG/DAY
     Dates: start: 2012, end: 20130116

REACTIONS (10)
  - Clonus [Unknown]
  - Withdrawal syndrome [Unknown]
  - Muscle spasticity [Unknown]
  - Dyskinesia [Unknown]
  - Irritability [Unknown]
  - Decreased appetite [Unknown]
  - Depressed mood [Unknown]
  - Pain [Unknown]
  - Insomnia [Unknown]
  - Device failure [Unknown]
